FAERS Safety Report 9450995 (Version 1)
Quarter: 2013Q3

REPORT INFORMATION
  Report Type: Spontaneous
  Country: US (occurrence: US)
  Receive Date: 20130809
  Receipt Date: 20130809
  Transmission Date: 20140515
  Serious: Yes (Other)
  Sender: FDA-Public Use
  Company Number: US-ABBOTT-13P-163-1128815-00

PATIENT
  Sex: Female
  Weight: 85.35 kg

DRUGS (2)
  1. DEPAKOTE [Suspect]
     Indication: CONVULSION
  2. DILANTIN [Suspect]
     Indication: CONVULSION
     Dosage: 200MG QAM, 230MG QPM
     Route: 048

REACTIONS (9)
  - Systemic lupus erythematosus [Unknown]
  - Coronary artery disease [Unknown]
  - Osteopenia [Unknown]
  - Lymphoedema [Unknown]
  - Reynold^s syndrome [Unknown]
  - Fibromyalgia [Unknown]
  - Tremor [Unknown]
  - Pneumonia [Unknown]
  - Thrombosis [Unknown]
